FAERS Safety Report 12655049 (Version 1)
Quarter: 2016Q3

REPORT INFORMATION
  Report Type: Spontaneous
  Country: None (occurrence: None)
  Receive Date: 20160815
  Receipt Date: 20160815
  Transmission Date: 20161109
  Serious: Yes (Life-Threatening, Hospitalization)
  Sender: FDA-Public Use
  Company Number: None

PATIENT
  Age: 57 Year
  Sex: Male
  Weight: 102.3 kg

DRUGS (1)
  1. IBRUTINIB [Suspect]
     Active Substance: IBRUTINIB
     Indication: WALDENSTROM^S MACROGLOBULINAEMIA
     Dates: start: 20150701, end: 20160811

REACTIONS (5)
  - Tachycardia [None]
  - Syncope [None]
  - Torsade de pointes [None]
  - Electrocardiogram QT prolonged [None]
  - Ventricular fibrillation [None]

NARRATIVE: CASE EVENT DATE: 20150811
